FAERS Safety Report 16179432 (Version 2)
Quarter: 2019Q2

REPORT INFORMATION
  Report Type: Spontaneous
  Country: US (occurrence: US)
  Receive Date: 20190410
  Receipt Date: 20190528
  Transmission Date: 20190711
  Serious: No
  Sender: FDA-Public Use
  Company Number: US-PFIZER INC-2017069823

PATIENT
  Age: 22 Year
  Sex: Female
  Weight: 43.9 kg

DRUGS (2)
  1. GENOTROPIN [Suspect]
     Active Substance: SOMATROPIN
     Indication: GROWTH HORMONE DEFICIENCY
     Dosage: 1.6 MG, DAILY
     Dates: start: 20130309
  2. GENOTROPIN [Suspect]
     Active Substance: SOMATROPIN
     Indication: BONE DISORDER
     Dosage: 1.6 MG, UNK(6 DAYS A WEEK)
     Dates: start: 201304

REACTIONS (3)
  - Device issue [Unknown]
  - Product dose omission [Unknown]
  - Bone density decreased [Unknown]
